FAERS Safety Report 7145265 (Version 2)
Quarter: 2020Q3

REPORT INFORMATION
  Report Type: Report from Study
  Country: US (occurrence: US)
  Receive Date: 20091009
  Receipt Date: 20100319
  Transmission Date: 20201104
  Serious: Yes (Life-Threatening, Other)
  Sender: FDA-Public Use
  Company Number: US-JNJFOC-20080706905

PATIENT
  Age: 64 Year
  Sex: Male
  Weight: 76.2 kg

DRUGS (15)
  1. CNTO 1275 [Suspect]
     Active Substance: USTEKINUMAB
     Indication: PSORIASIS
     Route: 058
     Dates: start: 20060613
  2. CNTO 1275 [Suspect]
     Active Substance: USTEKINUMAB
     Route: 058
     Dates: start: 20060613
  3. CNTO 1275 [Suspect]
     Active Substance: USTEKINUMAB
     Route: 058
     Dates: start: 20060613
  4. CNTO 1275 [Suspect]
     Active Substance: USTEKINUMAB
     Route: 058
     Dates: start: 20060613
  5. CNTO 1275 [Suspect]
     Active Substance: USTEKINUMAB
     Route: 058
     Dates: start: 20060613
  6. ACETAMINOPHEN. [Concomitant]
     Active Substance: ACETAMINOPHEN
     Route: 048
  7. CNTO 1275 [Suspect]
     Active Substance: USTEKINUMAB
     Route: 058
     Dates: start: 20060613
  8. CNTO 1275 [Suspect]
     Active Substance: USTEKINUMAB
     Route: 058
     Dates: start: 20060613
  9. IBUPROFEN. [Concomitant]
     Active Substance: IBUPROFEN
     Route: 048
  10. SIMVASTATIN. [Concomitant]
     Active Substance: SIMVASTATIN
     Route: 048
  11. OXYCODONE [Concomitant]
     Active Substance: OXYCODONE
     Route: 048
  12. CNTO 1275 [Suspect]
     Active Substance: USTEKINUMAB
     Route: 058
     Dates: start: 20060613
  13. CNTO 1275 [Suspect]
     Active Substance: USTEKINUMAB
     Route: 058
     Dates: start: 20060613
  14. IBUPROFEN. [Concomitant]
     Active Substance: IBUPROFEN
     Route: 048
  15. HYDROCHLOROTHIAZIDE. [Concomitant]
     Active Substance: HYDROCHLOROTHIAZIDE
     Route: 048

REACTIONS (1)
  - Prostate cancer [Not Recovered/Not Resolved]

NARRATIVE: CASE EVENT DATE: 20080307
